FAERS Safety Report 6991843-9 (Version None)
Quarter: 2010Q3

REPORT INFORMATION
  Report Type: 
  Country: None (occurrence: None)
  Receive Date: 20100917
  Receipt Date: 20100909
  Transmission Date: 20110219
  Serious: Yes (Other)
  Sender: FDA-Public Use
  Company Number: GB-PFIZER INC-2010114469

PATIENT
  Age: 53 Year
  Sex: Female

DRUGS (9)
  1. ATORVASTATIN CALCIUM [Suspect]
     Indication: DIABETES MELLITUS
     Dosage: UNK
     Route: 048
  2. CLOZARIL [Suspect]
     Indication: SCHIZOPHRENIA
     Dosage: UNK
     Route: 048
     Dates: start: 20031121
  3. ACETYLSALICYLIC ACID [Concomitant]
     Indication: ANGINA PECTORIS
     Dosage: UNK
     Route: 048
     Dates: start: 20040213
  4. DOCUSATE [Concomitant]
     Dosage: 200 MG, 2X/DAY
     Dates: start: 20031023
  5. PAROXETINE [Concomitant]
     Indication: DEPRESSION
     Dosage: UNK
     Route: 048
     Dates: start: 19930831
  6. PROCYCLIDINE [Concomitant]
     Dosage: 5 MG, 1X/DAY
     Route: 048
     Dates: start: 20080403
  7. RABEPRAZOLE [Concomitant]
     Indication: DYSPEPSIA
     Dosage: UNK
     Route: 048
     Dates: start: 20020822
  8. TERBINAFINE [Concomitant]
     Dosage: UNK
     Dates: start: 20070831
  9. BENZALKONIUM CHLORIDE [Concomitant]
     Dosage: UNK
     Dates: start: 20061103

REACTIONS (1)
  - TYPE 2 DIABETES MELLITUS [None]
